FAERS Safety Report 12993438 (Version 1)
Quarter: 2016Q4

REPORT INFORMATION
  Report Type: Spontaneous
  Country: US (occurrence: US)
  Receive Date: 20161201
  Receipt Date: 20161201
  Transmission Date: 20170207
  Serious: No
  Sender: FDA-Public Use
  Company Number: None

PATIENT
  Age: 55 Year
  Sex: Female

DRUGS (9)
  1. CLONAZEPAM. [Concomitant]
     Active Substance: CLONAZEPAM
  2. LISINOPRIL. [Concomitant]
     Active Substance: LISINOPRIL
  3. AZATHIOPRINE. [Concomitant]
     Active Substance: AZATHIOPRINE
  4. GABAPENTIN. [Concomitant]
     Active Substance: GABAPENTIN
  5. OXYCODONE [Concomitant]
     Active Substance: OXYCODONE
  6. PROAIR HFA [Concomitant]
     Active Substance: ALBUTEROL SULFATE
  7. FLUTICASONE [Concomitant]
     Active Substance: FLUTICASONE\FLUTICASONE PROPIONATE
  8. HYDROMORPHON [Concomitant]
     Active Substance: HYDROMORPHONE
  9. OCALIVA [Suspect]
     Active Substance: OBETICHOLIC ACID
     Indication: BILIARY CIRRHOSIS PRIMARY
     Route: 048
     Dates: start: 20161111

REACTIONS (2)
  - Flatulence [None]
  - Mood swings [None]

NARRATIVE: CASE EVENT DATE: 20161114
